FAERS Safety Report 17504659 (Version 1)
Quarter: 2020Q1

REPORT INFORMATION
  Report Type: Spontaneous
  Country: US (occurrence: US)
  Receive Date: 20200305
  Receipt Date: 20200305
  Transmission Date: 20200409
  Serious: No
  Sender: FDA-Public Use
  Company Number: US-SA-2019SA123987

PATIENT
  Sex: Male

DRUGS (8)
  1. CLONAZEPAM. [Concomitant]
     Active Substance: CLONAZEPAM
  2. DONEPEZIL. [Concomitant]
     Active Substance: DONEPEZIL
  3. ZETA [FUSIDATE SODIUM] [Concomitant]
  4. PRALUENT [Suspect]
     Active Substance: ALIROCUMAB
     Dosage: 1 UNK
     Route: 058
     Dates: start: 201706
  5. EFFIENT [Concomitant]
     Active Substance: PRASUGREL HYDROCHLORIDE
  6. AMLODIPINE [Concomitant]
     Active Substance: AMLODIPINE BESYLATE
  7. NITROSTAT [Concomitant]
     Active Substance: NITROGLYCERIN
  8. PRALUENT [Suspect]
     Active Substance: ALIROCUMAB
     Dosage: 1 DF, QOW
     Route: 058
     Dates: start: 201608

REACTIONS (2)
  - Pruritus [Unknown]
  - Alopecia [Unknown]
